FAERS Safety Report 13018300 (Version 1)
Quarter: 2016Q4

REPORT INFORMATION
  Report Type: Not Available
  Country: US (occurrence: US)
  Receive Date: 20161212
  Receipt Date: 20161212
  Transmission Date: 20170207
  Serious: No
  Sender: FDA-Public Use
  Company Number: US-ANIPHARMA-2016-US-003392

PATIENT
  Sex: Female

DRUGS (1)
  1. FLUVOXAMINE MALEATE 25 MG [Suspect]
     Active Substance: FLUVOXAMINE MALEATE
     Dosage: 25 MG THREE TIMES DAILY
     Route: 048
     Dates: start: 201505

REACTIONS (2)
  - Agitation [Unknown]
  - Weight increased [Unknown]
